FAERS Safety Report 12232940 (Version 3)
Quarter: 2016Q3

REPORT INFORMATION
  Report Type: Report from Study
  Country: US (occurrence: US)
  Receive Date: 20160402
  Receipt Date: 20160721
  Transmission Date: 20161109
  Serious: Yes (Hospitalization)
  Sender: FDA-Public Use
  Company Number: US-BIOGEN-2014BI064677

PATIENT
  Age: 37 Year
  Sex: Female
  Weight: 84.9 kg

DRUGS (4)
  1. TYSABRI [Suspect]
     Active Substance: NATALIZUMAB
     Route: 042
     Dates: start: 20150710, end: 20150710
  2. TYSABRI [Suspect]
     Active Substance: NATALIZUMAB
     Indication: MULTIPLE SCLEROSIS
     Route: 042
     Dates: start: 20130625, end: 20140507
  3. TYSABRI [Suspect]
     Active Substance: NATALIZUMAB
     Route: 042
     Dates: end: 201504
  4. ZONEGRAN [Concomitant]
     Active Substance: ZONISAMIDE
     Indication: SEIZURE
     Route: 065

REACTIONS (10)
  - Pain [Recovered/Resolved]
  - Vomiting projectile [Recovered/Resolved]
  - Liver function test increased [Recovered/Resolved]
  - Feeling abnormal [Not Recovered/Not Resolved]
  - Hepatitis toxic [Recovered/Resolved]
  - Aspartate aminotransferase increased [Recovered/Resolved]
  - Hepatic enzyme increased [Recovered/Resolved]
  - Liver injury [Recovered/Resolved]
  - Chromaturia [Not Recovered/Not Resolved]
  - Multiple sclerosis [Not Recovered/Not Resolved]

NARRATIVE: CASE EVENT DATE: 2014
